FAERS Safety Report 24040205 (Version 3)
Quarter: 2025Q1

REPORT INFORMATION
  Report Type: Report from Study
  Country: CN (occurrence: CN)
  Receive Date: 20240702
  Receipt Date: 20250123
  Transmission Date: 20250409
  Serious: No
  Sender: ROCHE
  Company Number: CN-ROCHE-10000009530

PATIENT
  Age: 68 Year
  Sex: Female
  Weight: 53 kg

DRUGS (37)
  1. POLIVY [Suspect]
     Active Substance: POLATUZUMAB VEDOTIN-PIIQ
     Indication: Diffuse large B-cell lymphoma
     Route: 042
     Dates: start: 20240328, end: 20240328
  2. BENDAMUSTINE [Suspect]
     Active Substance: BENDAMUSTINE
     Indication: Diffuse large B-cell lymphoma
     Dosage: ON 28-MAR-2024, SHE RECEIVED HER MOST RECENT DOSE (135MG) OF BENDAMUSTINE PRIOR TO AE.
     Route: 042
     Dates: start: 20240328, end: 20240329
  3. RITUXIMAB [Suspect]
     Active Substance: RITUXIMAB
     Indication: Diffuse large B-cell lymphoma
     Route: 042
     Dates: start: 20240327, end: 20240327
  4. RITUXIMAB [Suspect]
     Active Substance: RITUXIMAB
     Route: 042
     Dates: start: 20240417, end: 20240417
  5. Paracetamol and Caffeine Tablets [Concomitant]
     Route: 048
     Dates: start: 20240327, end: 20240327
  6. Paracetamol and Caffeine Tablets [Concomitant]
     Route: 048
     Dates: start: 20240508, end: 20240508
  7. Paracetamol and Caffeine Tablets [Concomitant]
     Route: 048
     Dates: start: 20240529, end: 20240529
  8. Paracetamol and Caffeine Tablets [Concomitant]
     Route: 048
     Dates: start: 20240417, end: 20240417
  9. Kang Ai Injection [Concomitant]
     Route: 042
     Dates: start: 20240327, end: 20240329
  10. Kang Ai Injection [Concomitant]
     Route: 042
     Dates: start: 20240417, end: 20240419
  11. Kang Ai Injection [Concomitant]
     Route: 042
     Dates: start: 20240508, end: 20240510
  12. Kang Ai Injection [Concomitant]
     Route: 042
     Dates: start: 20240529, end: 20240531
  13. PROMETHAZINE [Concomitant]
     Active Substance: PROMETHAZINE HYDROCHLORIDE
     Route: 030
     Dates: start: 20240417, end: 20240417
  14. PROMETHAZINE [Concomitant]
     Active Substance: PROMETHAZINE HYDROCHLORIDE
     Route: 030
     Dates: start: 20240508, end: 20240508
  15. PROMETHAZINE [Concomitant]
     Active Substance: PROMETHAZINE HYDROCHLORIDE
     Route: 030
     Dates: start: 20240529, end: 20240529
  16. PROMETHAZINE [Concomitant]
     Active Substance: PROMETHAZINE HYDROCHLORIDE
     Route: 030
     Dates: start: 20240327, end: 20240327
  17. DEXAMETHASONE SODIUM PHOSPHATE [Concomitant]
     Active Substance: DEXAMETHASONE SODIUM PHOSPHATE
     Route: 042
     Dates: start: 20240328, end: 20240328
  18. DEXAMETHASONE SODIUM PHOSPHATE [Concomitant]
     Active Substance: DEXAMETHASONE SODIUM PHOSPHATE
     Route: 042
     Dates: start: 20240417, end: 20240417
  19. DEXAMETHASONE SODIUM PHOSPHATE [Concomitant]
     Active Substance: DEXAMETHASONE SODIUM PHOSPHATE
     Route: 042
     Dates: start: 20240508, end: 20240508
  20. DEXAMETHASONE SODIUM PHOSPHATE [Concomitant]
     Active Substance: DEXAMETHASONE SODIUM PHOSPHATE
     Route: 042
     Dates: start: 20240418, end: 20240418
  21. DEXAMETHASONE SODIUM PHOSPHATE [Concomitant]
     Active Substance: DEXAMETHASONE SODIUM PHOSPHATE
     Route: 042
     Dates: start: 20240529, end: 20240529
  22. DEXAMETHASONE SODIUM PHOSPHATE [Concomitant]
     Active Substance: DEXAMETHASONE SODIUM PHOSPHATE
     Route: 042
     Dates: start: 20240327, end: 20240327
  23. Ondansetron Oral Soluble Pellicles [Concomitant]
     Indication: Vomiting
     Route: 048
     Dates: start: 20240418, end: 20240418
  24. Ondansetron Oral Soluble Pellicles [Concomitant]
     Route: 048
     Dates: start: 20240328, end: 20240328
  25. FOSAPREPITANT DIMEGLUMINE [Concomitant]
     Active Substance: FOSAPREPITANT DIMEGLUMINE
     Indication: Vomiting
     Route: 042
     Dates: start: 20240418, end: 20240418
  26. FOSAPREPITANT DIMEGLUMINE [Concomitant]
     Active Substance: FOSAPREPITANT DIMEGLUMINE
     Route: 042
     Dates: start: 20240509, end: 20240509
  27. FOSAPREPITANT DIMEGLUMINE [Concomitant]
     Active Substance: FOSAPREPITANT DIMEGLUMINE
     Route: 042
     Dates: start: 20240530, end: 20240530
  28. FOSAPREPITANT DIMEGLUMINE [Concomitant]
     Active Substance: FOSAPREPITANT DIMEGLUMINE
     Route: 042
     Dates: start: 20240328, end: 20240328
  29. Ten radix ginseng tablets [Concomitant]
     Route: 048
     Dates: start: 20240419, end: 20240505
  30. Ten radix ginseng tablets [Concomitant]
     Route: 048
     Dates: start: 20240329, end: 20240414
  31. Omeprazole Enteric-coated Capsules [Concomitant]
     Route: 048
     Dates: start: 20240419, end: 20240502
  32. Omeprazole Enteric-coated Capsules [Concomitant]
     Route: 048
     Dates: start: 20240329, end: 20240412
  33. Nadroparin Calcium Injection [Concomitant]
     Route: 042
     Dates: start: 20240508, end: 20240510
  34. Nadroparin Calcium Injection [Concomitant]
     Route: 042
     Dates: start: 20240529, end: 20240531
  35. Nadroparin Calcium Injection [Concomitant]
     Route: 042
     Dates: start: 20240417, end: 20240419
  36. Diammonium Glycyrrhizinate Enteric-coated Capsules [Concomitant]
     Route: 048
     Dates: start: 20240419, end: 20240503
  37. Bicyclol Tablets [Concomitant]
     Route: 048
     Dates: start: 20240419, end: 20240507

REACTIONS (3)
  - Gamma-glutamyltransferase increased [Not Recovered/Not Resolved]
  - Alanine aminotransferase increased [Recovered/Resolved]
  - Aspartate aminotransferase increased [Not Recovered/Not Resolved]

NARRATIVE: CASE EVENT DATE: 20240416
